FAERS Safety Report 8910448 (Version 2)
Quarter: 2015Q1

REPORT INFORMATION
  Report Type: Spontaneous
  Country: GB (occurrence: ES)
  Receive Date: 20121115
  Receipt Date: 20150112
  Transmission Date: 20150721
  Serious: Yes (Hospitalization)
  Sender: FDA-Public Use
  Company Number: GB-RANBAXY-2012R1-62024

PATIENT
  Age: 14 Month
  Sex: Male

DRUGS (2)
  1. IBUPROFEN. [Concomitant]
     Active Substance: IBUPROFEN
     Indication: PYREXIA
     Dosage: UNK
     Route: 065
  2. PARACETAMOL [Suspect]
     Active Substance: ACETAMINOPHEN
     Indication: PYREXIA
     Dosage: 5 ML  OF (500MG/5ML), Q4H
     Route: 048

REACTIONS (8)
  - Accidental overdose [Recovered/Resolved]
  - Viral rash [Recovered/Resolved]
  - Incorrect dose administered [Recovered/Resolved]
  - Tonsillar hypertrophy [Recovered/Resolved]
  - Diarrhoea [Recovered/Resolved]
  - Eating disorder [Recovered/Resolved]
  - Lethargy [Recovered/Resolved]
  - Jaundice [Recovered/Resolved]
